FAERS Safety Report 22602323 (Version 4)
Quarter: 2023Q4

REPORT INFORMATION
  Report Type: Spontaneous
  Country: US (occurrence: US)
  Receive Date: 20230614
  Receipt Date: 20231005
  Transmission Date: 20240109
  Serious: No
  Sender: FDA-Public Use
  Company Number: US-BRISTOL-MYERS SQUIBB COMPANY-2023-083824

PATIENT
  Age: 74 Year
  Sex: Female
  Weight: 44.0 kg

DRUGS (1)
  1. THALOMID [Suspect]
     Active Substance: THALIDOMIDE
     Indication: Waldenstrom^s macroglobulinaemia
     Route: 048
     Dates: start: 20230601

REACTIONS (9)
  - Nervousness [Unknown]
  - Emotional disorder [Unknown]
  - Anxiety [Unknown]
  - Product blister packaging issue [Unknown]
  - Hypoaesthesia [Not Recovered/Not Resolved]
  - Oral pain [Not Recovered/Not Resolved]
  - Off label use [Unknown]
  - Constipation [Recovering/Resolving]
  - Flatulence [Unknown]
